FAERS Safety Report 13365325 (Version 1)
Quarter: 2017Q1

REPORT INFORMATION
  Report Type: Spontaneous
  Country: US (occurrence: US)
  Receive Date: 20170323
  Receipt Date: 20170323
  Transmission Date: 20170429
  Serious: No
  Sender: FDA-Public Use
  Company Number: US-WARNER CHILCOTT-2017-000149

PATIENT
  Age: 56 Year
  Sex: Female
  Weight: 68.48 kg

DRUGS (1)
  1. ESTRACE [Suspect]
     Active Substance: ESTRADIOL
     Indication: ATROPHIC VULVOVAGINITIS
     Dosage: USED OFF AND ON
     Route: 067
     Dates: start: 2016

REACTIONS (3)
  - Vaginal inflammation [Unknown]
  - Vulvovaginal discomfort [Unknown]
  - Medical device discomfort [Unknown]
